FAERS Safety Report 18111473 (Version 1)
Quarter: 2020Q3

REPORT INFORMATION
  Report Type: Report from Study
  Country: US (occurrence: US)
  Receive Date: 20200804
  Receipt Date: 20200804
  Transmission Date: 20201103
  Serious: Yes (Hospitalization, Other)
  Sender: FDA-Public Use
  Company Number: NVSC2020US212331

PATIENT
  Sex: Female

DRUGS (1)
  1. MAYZENT [Suspect]
     Active Substance: SIPONIMOD
     Indication: PRODUCT USED FOR UNKNOWN INDICATION
     Dosage: 2 MG
     Route: 065

REACTIONS (10)
  - Speech disorder [Unknown]
  - Feeling abnormal [Unknown]
  - Peripheral swelling [Unknown]
  - Gait disturbance [Unknown]
  - Multiple sclerosis [Unknown]
  - Bradykinesia [Unknown]
  - Hypoaesthesia [Unknown]
  - Seizure [Unknown]
  - Back disorder [Unknown]
  - Fracture [Unknown]
